FAERS Safety Report 14796189 (Version 1)
Quarter: 2018Q2

REPORT INFORMATION
  Report Type: Report from Study
  Country: US (occurrence: US)
  Receive Date: 20180423
  Receipt Date: 20180423
  Transmission Date: 20180711
  Serious: No
  Sender: FDA-Public Use
  Company Number: US-AMGEN-USASL2018005926

PATIENT
  Age: 65 Year
  Sex: Female

DRUGS (2)
  1. REPATHA [Suspect]
     Active Substance: EVOLOCUMAB
     Indication: HYPERCHOLESTEROLAEMIA
     Dosage: 140 MG, Q2WK
     Route: 065
  2. REPATHA [Suspect]
     Active Substance: EVOLOCUMAB
     Dosage: 140 MG, Q2WK
     Route: 065

REACTIONS (12)
  - Oropharyngeal pain [Unknown]
  - Flatulence [Unknown]
  - Dyspnoea [Unknown]
  - Stomatitis [Unknown]
  - Influenza like illness [Unknown]
  - Headache [Unknown]
  - Dysphagia [Unknown]
  - Pain [Unknown]
  - Diarrhoea [Unknown]
  - Sneezing [Unknown]
  - Rhinorrhoea [Unknown]
  - Rash erythematous [Not Recovered/Not Resolved]

NARRATIVE: CASE EVENT DATE: 201801
